FAERS Safety Report 25245397 (Version 1)
Quarter: 2025Q2

REPORT INFORMATION
  Report Type: Spontaneous
  Country: US (occurrence: None)
  Receive Date: 20250426
  Receipt Date: 20250426
  Transmission Date: 20250716
  Serious: Yes (Disabling)
  Sender: FDA-CTU
  Company Number: None

PATIENT
  Age: 36 Year
  Sex: Female
  Weight: 74.25 kg

DRUGS (6)
  1. AJOVY [Suspect]
     Active Substance: FREMANEZUMAB-VFRM
     Indication: Migraine prophylaxis
     Dates: start: 20250225
  2. PANTOPRAZOLE [Concomitant]
     Active Substance: PANTOPRAZOLE
  3. TRAZODONE [Concomitant]
     Active Substance: TRAZODONE HYDROCHLORIDE
  4. MIDODRINE [Concomitant]
     Active Substance: MIDODRINE
  5. FISH OIL [Concomitant]
     Active Substance: FISH OIL
  6. MAGNESIUM GLYCINATE [Suspect]
     Active Substance: MAGNESIUM GLYCINATE

REACTIONS (8)
  - Dizziness [None]
  - Dizziness [None]
  - Tachycardia [None]
  - Abnormal behaviour [None]
  - Anxiety [None]
  - Agitation [None]
  - Mood swings [None]
  - Stress [None]

NARRATIVE: CASE EVENT DATE: 20250228
